FAERS Safety Report 12485680 (Version 3)
Quarter: 2016Q3

REPORT INFORMATION
  Report Type: Report from Study
  Country: CO (occurrence: CO)
  Receive Date: 20160621
  Receipt Date: 20160708
  Transmission Date: 20161109
  Serious: Yes (Death, Other)
  Sender: FDA-Public Use
  Company Number: PHHY2016CO073294

PATIENT
  Age: 57 Year
  Sex: Male

DRUGS (4)
  1. VOTRIENT [Suspect]
     Active Substance: PAZOPANIB HYDROCHLORIDE
     Dosage: 400 MG, BID
     Route: 048
  2. TRAZODONE [Concomitant]
     Active Substance: TRAZODONE HYDROCHLORIDE
     Indication: PRODUCT USED FOR UNKNOWN INDICATION
     Dosage: UNK
     Route: 048
  3. VOTRIENT [Suspect]
     Active Substance: PAZOPANIB HYDROCHLORIDE
     Indication: SOFT TISSUE SARCOMA
     Dosage: 400 MG, BID
     Route: 048
     Dates: start: 20160425, end: 20160531
  4. ACETAMINOPHEN. [Concomitant]
     Active Substance: ACETAMINOPHEN
     Indication: PAIN
     Dosage: 500 MG, PRN
     Route: 048

REACTIONS (17)
  - Asphyxia [Unknown]
  - Malignant neoplasm progression [Unknown]
  - Death [Fatal]
  - Infrequent bowel movements [Unknown]
  - Weight decreased [Unknown]
  - Musculoskeletal discomfort [Unknown]
  - Hypophagia [Unknown]
  - Bone neoplasm [Unknown]
  - Malaise [Unknown]
  - Anger [Unknown]
  - Dizziness [Unknown]
  - Dehydration [Unknown]
  - Tremor [Unknown]
  - Vomiting [Unknown]
  - Headache [Unknown]
  - Haematemesis [Unknown]
  - Fall [Unknown]

NARRATIVE: CASE EVENT DATE: 20160526
